FAERS Safety Report 18282992 (Version 3)
Quarter: 2020Q4

REPORT INFORMATION
  Report Type: Spontaneous
  Country: CA (occurrence: CA)
  Receive Date: 20200918
  Receipt Date: 20201027
  Transmission Date: 20210113
  Serious: Yes (Other)
  Sender: FDA-Public Use
  Company Number: CA-PFIZER INC-2020360897

PATIENT
  Age: 50 Year
  Sex: Female

DRUGS (3)
  1. ENBREL [Concomitant]
     Active Substance: ETANERCEPT
     Dosage: 50 MG, EVERY (Q) 6 WEEKS
     Route: 058
     Dates: start: 201906, end: 20200909
  2. METHOTREXATE SODIUM. [Suspect]
     Active Substance: METHOTREXATE SODIUM
     Dosage: 20 MG EVERY (Q) UNKNOWN (UNK)
     Route: 058
     Dates: start: 2015
  3. ENBREL [Concomitant]
     Active Substance: ETANERCEPT
     Dosage: 50 MG, EVERY (Q) 6 WEEKS
     Route: 058
     Dates: start: 201907, end: 20200909

REACTIONS (8)
  - Rheumatoid arthritis [Unknown]
  - Pruritus [Unknown]
  - Off label use [Unknown]
  - Product use issue [Unknown]
  - Contraindicated product administered [Unknown]
  - Hepatotoxicity [Unknown]
  - Drug ineffective [Unknown]
  - Hepatic enzyme increased [Unknown]

NARRATIVE: CASE EVENT DATE: 2015
